FAERS Safety Report 13393840 (Version 3)
Quarter: 2017Q2

REPORT INFORMATION
  Report Type: Report from Study
  Country: None (occurrence: CA)
  Receive Date: 20170331
  Receipt Date: 20170602
  Transmission Date: 20170830
  Serious: Yes (Hospitalization)
  Sender: FDA-Public Use
  Company Number: CA-ABBVIE-17P-028-1925895-00

PATIENT
  Sex: Male
  Weight: 61.29 kg

DRUGS (3)
  1. HOLKIRA PAK [Suspect]
     Active Substance: DASABUVIR\OMBITASVIR\PARITAPREVIR\RITONAVIR
     Indication: HEPATITIS C
     Dosage: PARITAPREVIR/R OMBITASVIR:150/100/25MG QD,DASABUVIR:250 MG BID
     Route: 048
     Dates: start: 20170128, end: 20170323
  2. HOLKIRA PAK [Suspect]
     Active Substance: DASABUVIR\OMBITASVIR\PARITAPREVIR\RITONAVIR
     Dosage: PARITAPREVIR/R?? OMBITASVIR:??150/100/25??MG QD,??DASABUVIR:??250 MG BID
     Route: 048
     Dates: start: 20170327, end: 20170425
  3. MODERIBA [Suspect]
     Active Substance: RIBAVIRIN
     Indication: HEPATITIS C
     Route: 048

REACTIONS (1)
  - Ankle fracture [Recovered/Resolved]

NARRATIVE: CASE EVENT DATE: 20170323
